FAERS Safety Report 6277111-1 (Version None)
Quarter: 2009Q3

REPORT INFORMATION
  Report Type: 
  Country: None (occurrence: None)
  Receive Date: 20090722
  Receipt Date: 20090108
  Transmission Date: 20100115
  Serious: Yes (Other)
  Sender: FDA-Public Use
  Company Number: US-BRISTOL-MYERS SQUIBB COMPANY-14464127

PATIENT

DRUGS (3)
  1. COUMADIN [Suspect]
  2. PLAVIX [Suspect]
     Dosage: STRENGTH 300 MG. 2 DOSAGEFORM = 2 TABS AS LOADING DOSE.
  3. TICLID [Suspect]

REACTIONS (1)
  - DRUG INTOLERANCE [None]
